FAERS Safety Report 7587177-4 (Version None)
Quarter: 2011Q3

REPORT INFORMATION
  Report Type: 
  Country: None (occurrence: None)
  Receive Date: 20110701
  Receipt Date: 20110620
  Transmission Date: 20111222
  Serious: Yes (Other)
  Sender: FDA-Public Use
  Company Number: GB-ELI_LILLY_AND_COMPANY-GB201106005418

PATIENT
  Age: 59 Year
  Sex: Male

DRUGS (4)
  1. DICLOFENAC SODIUM [Concomitant]
     Indication: ARTHRALGIA
     Dosage: 50 MG, TID
     Dates: start: 20100101
  2. OMEPRAZOLE [Concomitant]
     Dosage: 20 MG, UNK
     Dates: start: 20100607
  3. OLANZAPINE [Suspect]
     Indication: PSYCHOTIC DISORDER
     Dosage: 5 MG, UNK
     Dates: start: 20110301, end: 20110301
  4. NIFEDIPINE [Concomitant]
     Indication: RAYNAUD'S PHENOMENON
     Dosage: 5 MG, UNK
     Route: 048
     Dates: start: 20070101

REACTIONS (2)
  - PANIC ATTACK [None]
  - DIPLOPIA [None]
